FAERS Safety Report 23806729 (Version 1)
Quarter: 2024Q2

REPORT INFORMATION
  Report Type: Spontaneous
  Country: US (occurrence: US)
  Receive Date: 20240502
  Receipt Date: 20240502
  Transmission Date: 20240716
  Serious: Yes (Hospitalization, Other)
  Sender: FDA-Public Use
  Company Number: US-LUPIN HEALTHCARE (UK) LIMITED-2024-03502

PATIENT
  Age: 17 Year
  Sex: Female

DRUGS (3)
  1. SERTRALINE [Interacting]
     Active Substance: SERTRALINE HYDROCHLORIDE
     Indication: Anxiety
     Dosage: 100 MG, QD
     Route: 065
  2. SERTRALINE [Interacting]
     Active Substance: SERTRALINE HYDROCHLORIDE
     Indication: Depression
  3. HERBALS\MITRAGYNINE [Interacting]
     Active Substance: HERBALS\MITRAGYNINE
     Indication: Phytotherapy
     Dosage: UNK (HERBAL DRINK)
     Route: 048

REACTIONS (2)
  - Electrocardiogram QT prolonged [Recovered/Resolved]
  - Drug interaction [Unknown]
